FAERS Safety Report 24287180 (Version 1)
Quarter: 2024Q3

REPORT INFORMATION
  Report Type: Spontaneous
  Country: US (occurrence: None)
  Receive Date: 20240903
  Receipt Date: 20240903
  Transmission Date: 20241017
  Serious: Yes (Hospitalization)
  Sender: Public
  Company Number: None

PATIENT
  Age: 32 Year
  Sex: Male

DRUGS (1)
  1. XDEMVY [Suspect]
     Active Substance: LOTILANER
     Indication: Blepharitis
     Dosage: OTHER FREQUENCY : BID IN BOTH EYES FOR 6 WEEKS;?
     Route: 047
     Dates: start: 20240816

REACTIONS (4)
  - Quality of life decreased [None]
  - Eyelid margin crusting [None]
  - Ankle fracture [None]
  - Therapy interrupted [None]

NARRATIVE: CASE EVENT DATE: 20240801
